FAERS Safety Report 13131835 (Version 1)
Quarter: 2017Q1

REPORT INFORMATION
  Report Type: Spontaneous
  Country: US (occurrence: US)
  Receive Date: 20170119
  Receipt Date: 20170119
  Transmission Date: 20170428
  Serious: Yes (Death, Life-Threatening, Hospitalization, Other)
  Sender: FDA-Public Use
  Company Number: US-009507513-97-06-0992

PATIENT
  Age: 12 Year
  Sex: Male
  Weight: 68.03 kg

DRUGS (33)
  1. PROVENTIL [Suspect]
     Active Substance: ALBUTEROL
     Indication: ASTHMA
     Dosage: UNK
     Route: 055
     Dates: start: 199612, end: 199703
  2. PROVENTIL [Suspect]
     Active Substance: ALBUTEROL
     Dosage: UNK
     Route: 055
     Dates: start: 1989, end: 199609
  3. SOLU-MEDROL [Suspect]
     Active Substance: METHYLPREDNISOLONE SODIUM SUCCINATE
     Indication: ASTHMA
     Dosage: 125 MG, ONCE
     Route: 042
     Dates: start: 19970401, end: 19970401
  4. IBUPROFEN. [Suspect]
     Active Substance: IBUPROFEN
     Indication: PYREXIA
     Dosage: UNK
     Route: 065
     Dates: start: 19970409
  5. TERBUTALINE SULFATE. [Suspect]
     Active Substance: TERBUTALINE SULFATE
     Indication: PRODUCT USED FOR UNKNOWN INDICATION
     Dosage: BOLUS
     Route: 042
     Dates: start: 19970403
  6. ALBUTEROL SULFATE, USP (WARRICK) [Suspect]
     Active Substance: ALBUTEROL SULFATE
     Indication: ASTHMA
     Dosage: 17 G, DOSE: 20-50
     Route: 055
     Dates: start: 199609, end: 199612
  7. SOLU-MEDROL [Suspect]
     Active Substance: METHYLPREDNISOLONE SODIUM SUCCINATE
     Dosage: 125 MG, TWICE
     Route: 042
     Dates: start: 19970402, end: 19970402
  8. SOLU-MEDROL [Suspect]
     Active Substance: METHYLPREDNISOLONE SODIUM SUCCINATE
     Dosage: 125 MG X 6
     Route: 042
     Dates: start: 19970403, end: 19970403
  9. SOLU-MEDROL [Suspect]
     Active Substance: METHYLPREDNISOLONE SODIUM SUCCINATE
     Dosage: 40 MG, Q6H
     Route: 042
     Dates: start: 19970409, end: 19970410
  10. TERBUTALINE SULFATE. [Suspect]
     Active Substance: TERBUTALINE SULFATE
     Dosage: DRIP
     Route: 042
     Dates: start: 19970403
  11. LASIX [Suspect]
     Active Substance: FUROSEMIDE
     Indication: PRODUCT USED FOR UNKNOWN INDICATION
     Dosage: UNK
     Route: 065
     Dates: start: 199704
  12. PROVENTIL [Suspect]
     Active Substance: ALBUTEROL
     Dosage: UNK
     Route: 055
     Dates: start: 19970407
  13. SOLU-MEDROL [Suspect]
     Active Substance: METHYLPREDNISOLONE SODIUM SUCCINATE
     Dosage: 50 MG, ONCE
     Route: 042
     Dates: start: 19970410, end: 19970410
  14. TERBUTALINE SULFATE. [Suspect]
     Active Substance: TERBUTALINE SULFATE
     Dosage: WEANED SLIGHTLY
     Route: 042
     Dates: start: 19970406
  15. DIAMOX SEQUELS [Suspect]
     Active Substance: ACETAZOLAMIDE
     Indication: PYREXIA
     Route: 065
  16. CARAFATE [Suspect]
     Active Substance: SUCRALFATE
     Indication: PRODUCT USED FOR UNKNOWN INDICATION
     Route: 065
  17. SOLU-MEDROL [Suspect]
     Active Substance: METHYLPREDNISOLONE SODIUM SUCCINATE
     Dosage: 60 MG, Q6H
     Route: 042
     Dates: start: 19970408, end: 19970409
  18. FENTANYL. [Suspect]
     Active Substance: FENTANYL
     Indication: PRODUCT USED FOR UNKNOWN INDICATION
     Route: 065
  19. NASACORT [Suspect]
     Active Substance: TRIAMCINOLONE ACETONIDE
     Indication: PRODUCT USED FOR UNKNOWN INDICATION
     Route: 065
  20. AZMACORT [Suspect]
     Active Substance: TRIAMCINOLONE ACETONIDE
     Indication: ASTHMA
     Dosage: 4 DF, QD
     Route: 055
     Dates: end: 19970412
  21. TYLENOL [Suspect]
     Active Substance: ACETAMINOPHEN
     Indication: PYREXIA
     Dosage: UNK
     Route: 065
     Dates: start: 199704
  22. SOLU-MEDROL [Suspect]
     Active Substance: METHYLPREDNISOLONE SODIUM SUCCINATE
     Dosage: 40 MG, ONCE
     Route: 042
     Dates: start: 19970411, end: 19970411
  23. SOLU-MEDROL [Suspect]
     Active Substance: METHYLPREDNISOLONE SODIUM SUCCINATE
     Dosage: 40 MG, ONCE
     Route: 042
     Dates: start: 19970412, end: 19970412
  24. TERBUTALINE SULFATE. [Suspect]
     Active Substance: TERBUTALINE SULFATE
     Dosage: 1 MCG/KG/MIN
     Route: 042
     Dates: start: 19970403, end: 19970406
  25. PREDNISONE. [Suspect]
     Active Substance: PREDNISONE
     Indication: ASTHMA
     Dosage: 5 MG, TID
     Route: 065
     Dates: start: 199609
  26. CEFTAZIDIME. [Suspect]
     Active Substance: CEFTAZIDIME
     Indication: PRODUCT USED FOR UNKNOWN INDICATION
     Dosage: UNK
     Route: 065
     Dates: start: 19970409, end: 19970411
  27. ALBUTEROL SULFATE, USP (WARRICK) [Suspect]
     Active Substance: ALBUTEROL SULFATE
     Dosage: UNK
     Route: 055
     Dates: start: 199703, end: 19970412
  28. SOLU-MEDROL [Suspect]
     Active Substance: METHYLPREDNISOLONE SODIUM SUCCINATE
     Dosage: 125 MG X 4
     Route: 042
     Dates: start: 19970404, end: 19970404
  29. SOLU-MEDROL [Suspect]
     Active Substance: METHYLPREDNISOLONE SODIUM SUCCINATE
     Dosage: 125 MG, Q6H, TWICE
     Route: 042
     Dates: start: 19970405, end: 19970405
  30. ALBUTEROL SULFATE, USP (WARRICK) [Suspect]
     Active Substance: ALBUTEROL SULFATE
     Dosage: 10 MG, UNK
     Dates: start: 19970403
  31. SOLU-MEDROL [Suspect]
     Active Substance: METHYLPREDNISOLONE SODIUM SUCCINATE
     Dosage: 60 MG, Q6H
     Route: 042
     Dates: start: 19970405, end: 19970407
  32. SOLU-MEDROL [Suspect]
     Active Substance: METHYLPREDNISOLONE SODIUM SUCCINATE
     Dosage: 40 MG, Q6H
     Route: 042
     Dates: start: 19970410, end: 19970411
  33. BECLOVENT [Suspect]
     Active Substance: BECLOMETHASONE DIPROPIONATE
     Indication: PRODUCT USED FOR UNKNOWN INDICATION
     Route: 065

REACTIONS (57)
  - Septic shock [Fatal]
  - Intestinal gangrene [Fatal]
  - Blood calcium decreased [Not Recovered/Not Resolved]
  - Hypotension [Unknown]
  - Expired product administered [Unknown]
  - Feeling abnormal [Unknown]
  - Drug intolerance [Unknown]
  - Status asthmaticus [Not Recovered/Not Resolved]
  - Disseminated intravascular coagulation [Not Recovered/Not Resolved]
  - Abdominal sepsis [Not Recovered/Not Resolved]
  - Bronchial hyperreactivity [Not Recovered/Not Resolved]
  - Upper gastrointestinal haemorrhage [Unknown]
  - Perfume sensitivity [Unknown]
  - Medication error [Unknown]
  - Hypersensitivity [Unknown]
  - Erosive duodenitis [Unknown]
  - Ileus paralytic [Not Recovered/Not Resolved]
  - Acute respiratory distress syndrome [Not Recovered/Not Resolved]
  - Hepatic failure [Not Recovered/Not Resolved]
  - Upper respiratory tract infection [Unknown]
  - Drug hypersensitivity [Unknown]
  - Feminisation acquired [Unknown]
  - Drug ineffective [Not Recovered/Not Resolved]
  - Adverse drug reaction [Not Recovered/Not Resolved]
  - Incorrect dose administered [Unknown]
  - Gastritis [Unknown]
  - Hyperkalaemia [Not Recovered/Not Resolved]
  - Hyperuricaemia [Not Recovered/Not Resolved]
  - Systemic inflammatory response syndrome [Not Recovered/Not Resolved]
  - Gastric disorder [Unknown]
  - Intentional product misuse [Unknown]
  - Multiple organ dysfunction syndrome [Fatal]
  - Blood magnesium increased [Not Recovered/Not Resolved]
  - Cardiogenic shock [Not Recovered/Not Resolved]
  - Lactic acidosis [Not Recovered/Not Resolved]
  - Adverse drug reaction [Unknown]
  - Product use issue [Unknown]
  - Allergy to animal [Unknown]
  - Respiratory failure [Not Recovered/Not Resolved]
  - Overdose [Not Recovered/Not Resolved]
  - Thrombosis mesenteric vessel [Not Recovered/Not Resolved]
  - Diarrhoea [Unknown]
  - Product quality issue [Unknown]
  - Renal tubular necrosis [Not Recovered/Not Resolved]
  - Renal failure [Not Recovered/Not Resolved]
  - Hyperphosphataemia [Not Recovered/Not Resolved]
  - Capillary leak syndrome [Not Recovered/Not Resolved]
  - X-ray abnormal [Unknown]
  - Dyspnoea [Recovered/Resolved]
  - Dermatitis contact [Unknown]
  - Food allergy [Unknown]
  - Duodenal ulcer [Unknown]
  - Gastrointestinal haemorrhage [Not Recovered/Not Resolved]
  - Cardiomyopathy [Not Recovered/Not Resolved]
  - Ventricular tachycardia [Not Recovered/Not Resolved]
  - Influenza like illness [Unknown]
  - Drug hypersensitivity [Unknown]

NARRATIVE: CASE EVENT DATE: 1996
